FAERS Safety Report 9017251 (Version 2)
Quarter: 2014Q1

REPORT INFORMATION
  Report Type: Spontaneous
  Country: BR (occurrence: BR)
  Receive Date: 20130117
  Receipt Date: 20140303
  Transmission Date: 20141002
  Serious: Yes (Other)
  Sender: FDA-Public Use
  Company Number: BR-PFIZER INC-2013017480

PATIENT
  Sex: Male

DRUGS (1)
  1. CAVERJECT [Suspect]
     Dosage: UNK
     Dates: start: 2013

REACTIONS (3)
  - Penis injury [Unknown]
  - Penile curvature [Unknown]
  - Sexual dysfunction [Unknown]
